FAERS Safety Report 22094655 (Version 1)
Quarter: 2023Q1

REPORT INFORMATION
  Report Type: Spontaneous
  Country: GB (occurrence: GB)
  Receive Date: 20230314
  Receipt Date: 20230314
  Transmission Date: 20230418
  Serious: Yes (Life-Threatening, Hospitalization, Other)
  Sender: FDA-Public Use
  Company Number: GB-MYLANLABS-2023M1022528

PATIENT
  Age: 80 Year
  Sex: Male

DRUGS (10)
  1. ALLOPURINOL [Suspect]
     Active Substance: ALLOPURINOL
     Indication: Gout
     Dosage: 100 MILLIGRAM DAILY;
     Route: 048
     Dates: start: 2020
  2. EPLERENONE [Suspect]
     Active Substance: EPLERENONE
     Indication: Product used for unknown indication
     Dosage: UNK
     Route: 065
  3. FUROSEMIDE [Suspect]
     Active Substance: FUROSEMIDE
     Indication: Cardiac failure
     Dosage: 40 MILLIGRAM DAILY;
     Route: 048
     Dates: start: 2017
  4. RAMIPRIL [Suspect]
     Active Substance: RAMIPRIL
     Indication: Coronary artery disease
     Dosage: 5 MILLIGRAM DAILY;
     Route: 048
     Dates: start: 202008
  5. ATORVASTATIN CALCIUM [Concomitant]
     Active Substance: ATORVASTATIN CALCIUM
     Indication: Hypercholesterolaemia
     Dosage: 80 MILLIGRAM DAILY;
     Route: 048
     Dates: start: 2012
  6. EDOXABAN [Concomitant]
     Active Substance: EDOXABAN
     Indication: Atrial fibrillation
     Dosage: 30 MILLIGRAM DAILY;
     Route: 065
     Dates: start: 202008
  7. LEVOTHYROXINE [Concomitant]
     Active Substance: LEVOTHYROXINE
     Indication: Hypothyroidism
     Dosage: 50 MICROGRAM DAILY;
     Route: 048
     Dates: start: 2017
  8. LOPERAMIDE [Concomitant]
     Active Substance: LOPERAMIDE
     Indication: Gastrointestinal stoma complication
     Dosage: 16 MILLIGRAM DAILY;
     Route: 048
  9. LOPERAMIDE [Concomitant]
     Active Substance: LOPERAMIDE
     Indication: Diarrhoea
  10. SOTALOL [Concomitant]
     Active Substance: SOTALOL
     Indication: Atrial fibrillation
     Dosage: 160 MILLIGRAM DAILY;
     Route: 048
     Dates: start: 202008

REACTIONS (8)
  - Urosepsis [Recovered/Resolved with Sequelae]
  - Ileus [Recovered/Resolved]
  - Small intestinal obstruction [Unknown]
  - Cardiac amyloidosis [Unknown]
  - Acute kidney injury [Recovered/Resolved]
  - Thrombosis [Unknown]
  - Helicobacter infection [Unknown]
  - Benign prostatic hyperplasia [Unknown]

NARRATIVE: CASE EVENT DATE: 20180228
